FAERS Safety Report 7481709-2 (Version None)
Quarter: 2011Q2

REPORT INFORMATION
  Report Type: 
  Country: None (occurrence: None)
  Receive Date: 20110516
  Receipt Date: 20110506
  Transmission Date: 20111010
  Serious: Yes (Hospitalization)
  Sender: FDA-Public Use
  Company Number: A0781613A

PATIENT
  Age: 48 Year
  Sex: Female
  Weight: 63.6 kg

DRUGS (4)
  1. METOPROLOL SUCCINATE [Concomitant]
  2. GLIPIZIDE [Concomitant]
  3. GLUCOTROL [Concomitant]
     Dates: start: 20040924
  4. AVANDIA [Suspect]
     Dosage: 4MG PER DAY
     Route: 048
     Dates: start: 20040924, end: 20050501

REACTIONS (4)
  - TRANSIENT ISCHAEMIC ATTACK [None]
  - ACUTE MYOCARDIAL INFARCTION [None]
  - ARTERIOSCLEROSIS CORONARY ARTERY [None]
  - MYOCARDIAL ISCHAEMIA [None]
